FAERS Safety Report 9117015 (Version 2)
Quarter: 2013Q1

REPORT INFORMATION
  Report Type: Spontaneous
  Country: US (occurrence: US)
  Receive Date: 20130225
  Receipt Date: 20130304
  Transmission Date: 20140127
  Serious: No
  Sender: FDA-Public Use
  Company Number: US-PFIZER INC-2013066864

PATIENT
  Age: 48 Year
  Sex: Female
  Weight: 77.1 kg

DRUGS (4)
  1. LYRICA [Suspect]
     Indication: HERPES ZOSTER
     Dosage: 75 MG, 2X/DAY
     Dates: start: 201302
  2. ISOSORBIDE MONONITRATE [Suspect]
     Indication: STRESS CARDIOMYOPATHY
     Dosage: 30 MG/DAY
  3. DILTIAZEM HCL [Suspect]
     Indication: STRESS CARDIOMYOPATHY
     Dosage: UNK, 2X/DAY (240 MG IN THE MORNING AND 120 MG IN THE EVENING)
  4. NITROSTAT [Concomitant]
     Indication: PRINZMETAL ANGINA
     Dosage: 0.4 MG, AS NEEDED

REACTIONS (4)
  - Dizziness [Unknown]
  - Fatigue [Unknown]
  - Somnolence [Unknown]
  - Local swelling [Not Recovered/Not Resolved]
